FAERS Safety Report 22860776 (Version 3)
Quarter: 2023Q4

REPORT INFORMATION
  Report Type: Spontaneous
  Country: US (occurrence: US)
  Receive Date: 20230824
  Receipt Date: 20231018
  Transmission Date: 20240110
  Serious: No
  Sender: FDA-Public Use
  Company Number: US-PFIZER INC-PV202300142065

PATIENT
  Age: 33 Year
  Sex: Female
  Weight: 75.283 kg

DRUGS (1)
  1. MEDROXYPROGESTERONE ACETATE [Suspect]
     Active Substance: MEDROXYPROGESTERONE ACETATE
     Indication: Contraception
     Dosage: 150 MG, EVERY 10 WEEKS
     Route: 030

REACTIONS (4)
  - Poor quality device used [Unknown]
  - Device delivery system issue [Unknown]
  - Device leakage [Unknown]
  - Inappropriate schedule of product administration [Unknown]

NARRATIVE: CASE EVENT DATE: 20230816
